FAERS Safety Report 7704866-9 (Version None)
Quarter: 2011Q3

REPORT INFORMATION
  Report Type: 
  Country: None (occurrence: None)
  Receive Date: 20110823
  Receipt Date: 20110808
  Transmission Date: 20111222
  Serious: Yes (Death, Hospitalization)
  Sender: FDA-Public Use
  Company Number: JP-WATSON-2011-13076

PATIENT
  Age: 68 Year
  Sex: Male

DRUGS (2)
  1. PREDNISOLONE [Suspect]
     Indication: DRUG ERUPTION
     Dosage: 60 MG, DAILY
  2. ALLOPURINOL [Suspect]
     Indication: PRODUCT USED FOR UNKNOWN INDICATION
     Dosage: UNK

REACTIONS (4)
  - EOSINOPHILIA [None]
  - CYTOMEGALOVIRUS INFECTION [None]
  - DRUG ERUPTION [None]
  - STRONGYLOIDIASIS [None]
